FAERS Safety Report 10071322 (Version 1)
Quarter: 2014Q2

REPORT INFORMATION
  Report Type: Spontaneous
  Country: US (occurrence: US)
  Receive Date: 20140410
  Receipt Date: 20140410
  Transmission Date: 20141212
  Serious: Yes (Other)
  Sender: FDA-Public Use
  Company Number: US-ACTAVIS-2014-06659

PATIENT
  Age: 66 Year
  Sex: Male

DRUGS (3)
  1. AMLODIPINE BESYLATE (WATSON LABORATORIES) [Suspect]
     Indication: HYPERTENSION
     Dosage: UNK
     Route: 065
  2. ENALAPRIL [Concomitant]
     Indication: HYPERTENSION
     Dosage: UNK
     Route: 065
  3. ATENOLOL [Concomitant]
     Indication: HYPERTENSION
     Dosage: UNK
     Route: 065

REACTIONS (4)
  - Eczema [Recovered/Resolved]
  - Lymphocytic infiltration [Recovered/Resolved]
  - Acanthosis [Recovered/Resolved]
  - Parakeratosis [Recovered/Resolved]
